FAERS Safety Report 20278923 (Version 2)
Quarter: 2022Q1

REPORT INFORMATION
  Report Type: Report from Study
  Country: US (occurrence: US)
  Receive Date: 20220103
  Receipt Date: 20220105
  Transmission Date: 20220423
  Serious: Yes (Other)
  Sender: FDA-Public Use
  Company Number: US-NOVARTISPH-NVSC2021US005939

PATIENT
  Age: 12 Year
  Sex: Female
  Weight: 80 kg

DRUGS (14)
  1. PIQRAY [Suspect]
     Active Substance: ALPELISIB
     Indication: Vascular malformation
     Dosage: 100 MG, (BATCH NO SEQ 114493)
     Route: 048
     Dates: start: 20200915, end: 20211220
  2. PIQRAY [Suspect]
     Active Substance: ALPELISIB
     Indication: PIK3CA related overgrowth spectrum
  3. PIQRAY [Suspect]
     Active Substance: ALPELISIB
     Indication: PIK3CA-activated mutation
  4. RIZATRIPTAN [Concomitant]
     Active Substance: RIZATRIPTAN
     Indication: Migraine
     Dosage: 5 MG (NOT RECENT USE)
     Route: 048
  5. NORTRIPTYLINE [Concomitant]
     Active Substance: NORTRIPTYLINE
     Indication: Migraine
     Dosage: 40 MG
     Route: 048
     Dates: end: 20210104
  6. MELATONIN [Concomitant]
     Active Substance: MELATONIN
     Indication: Insomnia
     Dosage: 3 MG
     Route: 048
     Dates: end: 20210104
  7. ESOMEPRAZOLE [Concomitant]
     Active Substance: ESOMEPRAZOLE
     Indication: Reflux gastritis
     Dosage: 20 MG
     Route: 048
     Dates: end: 20210104
  8. CYPROHEPTADINE [Concomitant]
     Active Substance: CYPROHEPTADINE
     Indication: Abdominal pain
     Dosage: 2 MG
     Route: 048
     Dates: end: 20210104
  9. CYPROHEPTADINE [Concomitant]
     Active Substance: CYPROHEPTADINE
     Indication: Nausea
  10. ALBUTEROL [Concomitant]
     Active Substance: ALBUTEROL
     Indication: Wheezing
     Dosage: 90 MCG/ML (2 PUTT PRN) (NO RECENT USE)
     Route: 065
  11. FLOVENT [Concomitant]
     Active Substance: FLUTICASONE PROPIONATE
     Indication: Wheezing
     Dosage: 20 PUTT, PRN
     Route: 065
  12. EMLA [Concomitant]
     Active Substance: LIDOCAINE\PRILOCAINE
     Indication: Product used for unknown indication
     Dosage: 25 %
     Route: 061
  13. VITAMINS [Concomitant]
     Active Substance: VITAMINS
     Indication: Vegetarian
     Dosage: 1 DF
     Route: 065
     Dates: start: 20200812, end: 20210104
  14. CLINDAMYCIN [Concomitant]
     Active Substance: CLINDAMYCIN
     Indication: Acne
     Dosage: 150 MG
     Route: 065
     Dates: end: 20210104

REACTIONS (22)
  - Syncope [Recovered/Resolved]
  - Loss of consciousness [Unknown]
  - Confusional state [Unknown]
  - Dizziness [Unknown]
  - Cold sweat [Unknown]
  - Stomatitis [Recovered/Resolved]
  - Stomatitis [Recovered/Resolved]
  - Decreased appetite [Recovered/Resolved]
  - COVID-19 [Recovered/Resolved]
  - Decreased appetite [Unknown]
  - Cough [Unknown]
  - Oropharyngeal pain [Unknown]
  - Fatigue [Unknown]
  - Anosmia [Unknown]
  - Ageusia [Unknown]
  - Nausea [Unknown]
  - Vomiting [Recovered/Resolved]
  - Headache [Recovered/Resolved]
  - Dysgeusia [Unknown]
  - Chills [Unknown]
  - Rash [Unknown]
  - Erythema [Recovered/Resolved]

NARRATIVE: CASE EVENT DATE: 20210105
